FAERS Safety Report 23726515 (Version 5)
Quarter: 2024Q2

REPORT INFORMATION
  Report Type: Spontaneous
  Country: DE (occurrence: DE)
  Receive Date: 20240410
  Receipt Date: 20240518
  Transmission Date: 20240716
  Serious: Yes (Hospitalization)
  Sender: FDA-Public Use
  Company Number: DE-TEVA-VS-3180008

PATIENT
  Age: 66 Year
  Sex: Female

DRUGS (24)
  1. AMLODIPINE BESYLATE [Suspect]
     Active Substance: AMLODIPINE BESYLATE
     Indication: Hypertension
     Dosage: AMLODIPIN [BESILAT] ABZ, DOSAGE: 5 MG EVENING HALF TABLET,
     Route: 048
     Dates: start: 20240320, end: 20240320
  2. AMLODIPINE BESYLATE [Suspect]
     Active Substance: AMLODIPINE BESYLATE
     Indication: Hypertension
     Dosage: AMLODIPIN [BESILAT] ABZ, DOSAGE: 5 MG EVENING HALF TABLET,
     Route: 048
  3. AMLODIPINE BESYLATE [Suspect]
     Active Substance: AMLODIPINE BESYLATE
     Indication: Hypertension
     Dosage: AMLODIPIN [BESILAT] ABZ, DOSAGE: 5 MG EVENING HALF TABLET,
     Route: 048
     Dates: end: 2024
  4. FENOTEROL HYDROBROMIDE\IPRATROPIUM BROMIDE [Concomitant]
     Active Substance: FENOTEROL HYDROBROMIDE\IPRATROPIUM BROMIDE
     Indication: Asthma
     Dosage: 400MG AEROSOL
     Route: 055
  5. VERAPAMIL [Concomitant]
     Active Substance: VERAPAMIL HYDROCHLORIDE
     Dosage: RETARD 1 A PHARMA
  6. RAMIPRIL [Concomitant]
     Active Substance: RAMIPRIL
  7. ARIPIPRAZOLE [Concomitant]
     Active Substance: ARIPIPRAZOLE
     Indication: Sensory disturbance
     Dosage: RATIOPHARM
  8. AUGENTROPFEN [Concomitant]
     Indication: Seasonal allergy
  9. PANTOPRAZOLE SODIUM [Concomitant]
     Active Substance: PANTOPRAZOLE SODIUM
     Dosage: RATIOPHARM, ARISTO
  10. SIMVASTATIN [Concomitant]
     Active Substance: SIMVASTATIN
     Dosage: ARISTO PHARMA
  11. BUDESONIDE [Concomitant]
     Active Substance: BUDESONIDE
     Route: 055
  12. FENOTEROL HYDROBROMIDE\IPRATROPIUM BROMIDE [Concomitant]
     Active Substance: FENOTEROL HYDROBROMIDE\IPRATROPIUM BROMIDE
     Dosage: IF REQUIRED
  13. ATROVENT [Concomitant]
     Active Substance: IPRATROPIUM BROMIDE
     Route: 055
  14. PULMICORT TURBUHALER [Concomitant]
     Active Substance: BUDESONIDE
     Route: 055
  15. MOMETA [Concomitant]
  16. Hylo-Gel eye drops [Concomitant]
     Indication: Dry eye
  17. BUDESONIDE [Concomitant]
     Active Substance: BUDESONIDE
     Dosage: BREEZHALER , 400MCG
  18. PATRON [Concomitant]
  19. RAMIPRIL [Concomitant]
     Active Substance: RAMIPRIL
     Dosage: ABZ
  20. LORATADINE [Concomitant]
     Active Substance: LORATADINE
     Dosage: 1 A PHARMA IF REQUIRED
  21. MAGNESIUM CITRATE [Concomitant]
     Active Substance: MAGNESIUM CITRATE
     Dosage: PULVER VITAL CASIDA
  22. SIMVASTATIN [Concomitant]
     Active Substance: SIMVASTATIN
     Dosage: ARISTO
  23. FENOTEROL HYDROBROMIDE\IPRATROPIUM BROMIDE [Concomitant]
     Active Substance: FENOTEROL HYDROBROMIDE\IPRATROPIUM BROMIDE
     Dosage: 0.02 MG, 0.05 MG,
  24. TORSEMIDE [Concomitant]
     Active Substance: TORSEMIDE
     Dosage: ABZ

REACTIONS (17)
  - Drug hypersensitivity [Unknown]
  - Malaise [Recovering/Resolving]
  - Erythema [Recovering/Resolving]
  - Dry mouth [Recovering/Resolving]
  - Dyspnoea [Recovering/Resolving]
  - Tremor [Recovering/Resolving]
  - Feeling abnormal [Unknown]
  - Nausea [Recovering/Resolving]
  - Anxiety [Recovering/Resolving]
  - Wrong technique in product usage process [Unknown]
  - Dry skin [Recovering/Resolving]
  - Oropharyngeal discomfort [Recovering/Resolving]
  - Asthenia [Recovering/Resolving]
  - Muscular weakness [Unknown]
  - Paraesthesia [Unknown]
  - Palpitations [Unknown]
  - Skin disorder [Unknown]

NARRATIVE: CASE EVENT DATE: 20240301
